FAERS Safety Report 19834997 (Version 2)
Quarter: 2022Q3

REPORT INFORMATION
  Report Type: Report from Study
  Country: DE (occurrence: DE)
  Receive Date: 20210915
  Receipt Date: 20220923
  Transmission Date: 20221027
  Serious: Yes (Hospitalization, Congenital Anomaly, Other)
  Sender: FDA-Public Use
  Company Number: DE-NOVARTISPH-NVSC2021DE206957

PATIENT
  Sex: Male
  Weight: 3.025 kg

DRUGS (1)
  1. GILENYA [Suspect]
     Active Substance: FINGOLIMOD HYDROCHLORIDE
     Indication: Foetal exposure during pregnancy
     Dosage: (MATERNAL DOSE: 0.5 MG, QD)
     Route: 064
     Dates: start: 201303, end: 20201203

REACTIONS (6)
  - Ventricular septal defect [Not Recovered/Not Resolved]
  - Renal aplasia [Not Recovered/Not Resolved]
  - Kidney duplex [Not Recovered/Not Resolved]
  - Congenital cardiovascular anomaly [Unknown]
  - Urinary tract malformation [Unknown]
  - Foetal exposure during pregnancy [Unknown]

NARRATIVE: CASE EVENT DATE: 20210811
